FAERS Safety Report 10577540 (Version 1)
Quarter: 2014Q4

REPORT INFORMATION
  Report Type: Spontaneous
  Country: US (occurrence: US)
  Receive Date: 20141111
  Receipt Date: 20141111
  Transmission Date: 20150529
  Serious: Yes (Other)
  Sender: FDA-Public Use
  Company Number: US-ELI_LILLY_AND_COMPANY-US201411000412

PATIENT
  Sex: Male

DRUGS (3)
  1. LANTUS [Concomitant]
     Active Substance: INSULIN GLARGINE
     Dosage: UNK
  2. HUMALOG [Suspect]
     Active Substance: INSULIN LISPRO
     Indication: TYPE 2 DIABETES MELLITUS
     Dosage: 30 U, QD
     Route: 065
     Dates: start: 1995
  3. HUMALOG [Suspect]
     Active Substance: INSULIN LISPRO
     Dosage: 12 U, TID
     Route: 065
     Dates: start: 1995

REACTIONS (4)
  - Atrial fibrillation [Unknown]
  - Sleep apnoea syndrome [Unknown]
  - Haemorrhage [Unknown]
  - Renal failure [Unknown]
